FAERS Safety Report 12558719 (Version 2)
Quarter: 2016Q3

REPORT INFORMATION
  Report Type: Report from Study
  Country: US (occurrence: US)
  Receive Date: 20160715
  Receipt Date: 20160720
  Transmission Date: 20161109
  Serious: No
  Sender: FDA-Public Use
  Company Number: US-AMGEN-USASL2016087922

PATIENT
  Age: 33 Year
  Sex: Female

DRUGS (2)
  1. PREDNISONE. [Concomitant]
     Active Substance: PREDNISONE
     Dosage: UNK
  2. ENBREL [Suspect]
     Active Substance: ETANERCEPT
     Indication: RHEUMATOID ARTHRITIS
     Dosage: UNK, ONCE WEEKLY
     Route: 065
     Dates: start: 20160620

REACTIONS (6)
  - Asthenia [Unknown]
  - Migraine [Recovered/Resolved]
  - Injection site reaction [Unknown]
  - Injection site pruritus [Recovering/Resolving]
  - Sluggishness [Unknown]
  - Depressed mood [Unknown]

NARRATIVE: CASE EVENT DATE: 2016
